FAERS Safety Report 17361483 (Version 1)
Quarter: 2020Q1

REPORT INFORMATION
  Report Type: Spontaneous
  Country: FR (occurrence: FR)
  Receive Date: 20200203
  Receipt Date: 20200203
  Transmission Date: 20200409
  Serious: Yes (Other)
  Sender: FDA-Public Use
  Company Number: FR-BIOVITRUM-2020FR0449

PATIENT
  Age: 18 Year
  Sex: Female

DRUGS (2)
  1. ORFADIN [Suspect]
     Active Substance: NITISINONE
     Indication: TYROSINAEMIA
     Dates: start: 1995, end: 2013
  2. ORFADIN [Suspect]
     Active Substance: NITISINONE
     Dates: start: 2013

REACTIONS (9)
  - Porphyria acute [Recovered/Resolved]
  - Back pain [Unknown]
  - Succinylacetone increased [Unknown]
  - Hepatic failure [Recovered/Resolved]
  - Exposure during pregnancy [Recovered/Resolved]
  - Osteoporosis [Unknown]
  - Amino acid level increased [Unknown]
  - Alpha 1 foetoprotein increased [Recovered/Resolved]
  - Treatment noncompliance [Unknown]

NARRATIVE: CASE EVENT DATE: 2013
